FAERS Safety Report 24887011 (Version 2)
Quarter: 2025Q1

REPORT INFORMATION
  Report Type: Spontaneous
  Country: US (occurrence: US)
  Receive Date: 20250127
  Receipt Date: 20250130
  Transmission Date: 20250409
  Serious: No
  Sender: Kenvue
  Company Number: US-KENVUE-20250102118

PATIENT
  Sex: Female

DRUGS (1)
  1. MENS ROGAINE EXTRA STRENGTH [Suspect]
     Active Substance: MINOXIDIL
     Indication: Alopecia
     Dosage: 1 MILLIGRAM, ONCE A DAY
     Route: 061
     Dates: start: 20240715

REACTIONS (6)
  - Intentional product misuse [Unknown]
  - Product use issue [Unknown]
  - Poor quality product administered [Unknown]
  - Product colour issue [Unknown]
  - Suspected product tampering [Unknown]
  - Product lot number issue [Unknown]

NARRATIVE: CASE EVENT DATE: 20240715
